FAERS Safety Report 6800604-2 (Version None)
Quarter: 2010Q2

REPORT INFORMATION
  Report Type: 
  Country: None (occurrence: None)
  Receive Date: 20100629
  Receipt Date: 20100621
  Transmission Date: 20101027
  Serious: Yes (Other)
  Sender: FDA-Public Use
  Company Number: US-ASTRAZENECA-2009UW13545

PATIENT
  Age: 686 Month
  Sex: Female
  Weight: 93 kg

DRUGS (38)
  1. SEROQUEL [Suspect]
     Indication: BIPOLAR DISORDER
     Route: 048
     Dates: start: 20020101
  2. SEROQUEL [Suspect]
     Indication: ANXIETY
     Route: 048
     Dates: start: 20020101
  3. SEROQUEL [Suspect]
     Indication: PANIC ATTACK
     Route: 048
     Dates: start: 20020101
  4. SEROQUEL [Suspect]
     Route: 048
     Dates: start: 20020117
  5. SEROQUEL [Suspect]
     Route: 048
     Dates: start: 20020117
  6. SEROQUEL [Suspect]
     Route: 048
     Dates: start: 20020117
  7. SEROQUEL [Suspect]
     Route: 048
     Dates: start: 20021001
  8. SEROQUEL [Suspect]
     Route: 048
     Dates: start: 20021001
  9. SEROQUEL [Suspect]
     Route: 048
     Dates: start: 20021001
  10. SEROQUEL [Suspect]
     Dosage: 25MG-300MG DAILY
     Route: 048
     Dates: start: 20050522
  11. SEROQUEL [Suspect]
     Dosage: 25MG-300MG DAILY
     Route: 048
     Dates: start: 20050522
  12. SEROQUEL [Suspect]
     Dosage: 25MG-300MG DAILY
     Route: 048
     Dates: start: 20050522
  13. PREVACID [Concomitant]
     Indication: GASTRITIS
     Route: 048
     Dates: start: 20050825
  14. KLOR-CON [Concomitant]
     Indication: MINERAL SUPPLEMENTATION
     Route: 048
     Dates: start: 20050522
  15. LASIX [Concomitant]
     Indication: POLYURIA
     Dates: start: 20020129
  16. LASIX [Concomitant]
     Dates: start: 20050522
  17. LASIX [Concomitant]
     Route: 048
     Dates: start: 20060504
  18. DETROL [Concomitant]
     Indication: MICTURITION URGENCY
     Route: 048
     Dates: start: 20020129
  19. DETROL [Concomitant]
     Route: 048
     Dates: start: 20060504
  20. DIOVAN [Concomitant]
     Indication: BLOOD PRESSURE
  21. DIOVAN [Concomitant]
  22. ZELNORM [Concomitant]
  23. DONNATEL [Concomitant]
     Indication: ABDOMINAL PAIN
  24. KEPRA [Concomitant]
     Dates: start: 20050825
  25. PHENOBARB [Concomitant]
     Dosage: THRICE A DAY
     Dates: start: 20050825
  26. PHEN-PHEN [Concomitant]
  27. FEMHRT [Concomitant]
  28. BIAXIN [Concomitant]
     Indication: UPPER RESPIRATORY TRACT INFECTION
     Dates: start: 20010101
  29. MEDENT [Concomitant]
     Indication: UPPER RESPIRATORY TRACT INFECTION
     Dates: start: 20010101
  30. KLONOPIN [Concomitant]
     Indication: ANXIETY
     Dosage: 1.5 TAB DAILY
     Dates: start: 20020129
  31. KLONOPIN [Concomitant]
     Indication: DEPRESSION
     Dosage: 1.5 TAB DAILY
     Dates: start: 20020129
  32. ZOLOFT [Concomitant]
     Indication: ANXIETY
     Dates: start: 20010101
  33. ZOLOFT [Concomitant]
     Indication: DEPRESSION
     Dates: start: 20010101
  34. RISPERDAL [Concomitant]
     Indication: CHRONIC OBSTRUCTIVE PULMONARY DISEASE
     Dates: start: 20010101
  35. FEMSTAT [Concomitant]
     Dates: start: 20010101
  36. METOPROLOL [Concomitant]
     Dates: start: 20100213
  37. TRANXENE [Concomitant]
     Indication: ANXIETY
     Dates: start: 20020129
  38. TRANXENE [Concomitant]
     Indication: PANIC ATTACK
     Dates: start: 20020129

REACTIONS (11)
  - CARDIAC DISORDER [None]
  - CELLULITIS [None]
  - CEREBRAL PALSY [None]
  - EYE DISORDER [None]
  - HYPERTENSION [None]
  - MITRAL VALVE PROLAPSE [None]
  - MULTIPLE SCLEROSIS [None]
  - OBESITY [None]
  - TYPE 2 DIABETES MELLITUS [None]
  - VASCULAR INSUFFICIENCY [None]
  - WEIGHT INCREASED [None]
